FAERS Safety Report 8489885-X (Version None)
Quarter: 2012Q3

REPORT INFORMATION
  Report Type: 
  Country: None (occurrence: None)
  Receive Date: 20120705
  Receipt Date: 20120628
  Transmission Date: 20120928
  Serious: Yes (Other)
  Sender: FDA-Public Use
  Company Number: PHHY2012TR055666

PATIENT
  Age: 60 Year
  Sex: Male

DRUGS (1)
  1. WARFARIN SODIUM [Suspect]
     Indication: PULMONARY HYPERTENSION

REACTIONS (3)
  - HAEMOPTYSIS [None]
  - HYPHAEMA [None]
  - CONJUNCTIVAL HAEMORRHAGE [None]
